FAERS Safety Report 5304265-3 (Version None)
Quarter: 2007Q2

REPORT INFORMATION
  Report Type: 
  Country: None (occurrence: None)
  Receive Date: 20070423
  Receipt Date: 20070410
  Transmission Date: 20071010
  Serious: Yes (Other)
  Sender: FDA-Public Use
  Company Number: PHEH2007US04984

PATIENT
  Sex: Female

DRUGS (1)
  1. GENTEAL DROPS (NVO) [Suspect]
     Dosage: UNK, ONCE/SINGLE
     Dates: start: 20070410

REACTIONS (2)
  - DEAFNESS [None]
  - WRONG DRUG ADMINISTERED [None]
